FAERS Safety Report 10176650 (Version 1)
Quarter: 2014Q2

REPORT INFORMATION
  Report Type: Spontaneous
  Country: CN (occurrence: CN)
  Receive Date: 20140516
  Receipt Date: 20140516
  Transmission Date: 20141212
  Serious: Yes (Other)
  Sender: FDA-Public Use
  Company Number: CN-BAYER-2014-068225

PATIENT
  Age: 77 Year
  Sex: Male
  Weight: 71 kg

DRUGS (5)
  1. GLUCOBAY [Suspect]
     Indication: DIABETES MELLITUS
     Dosage: 50 MG, TID
     Route: 048
     Dates: start: 20131128, end: 20131130
  2. LEVOFLOXACIN [Interacting]
     Indication: LUNG INFECTION
     Dosage: 0.4 G, QD
     Route: 042
     Dates: start: 20131128, end: 20131202
  3. CEFTRIAXONE [Concomitant]
     Indication: LUNG INFECTION
     Dosage: 2 G, QD
     Route: 042
     Dates: start: 20131128, end: 20131202
  4. GLUCOSE INJECTION [Concomitant]
     Indication: LUNG INFECTION
     Dosage: 250 ML, QD
     Route: 042
     Dates: start: 20131128, end: 20131202
  5. SODIUM CHLORIDE INJECTION [Concomitant]
     Indication: LUNG INFECTION
     Dosage: 100 ML, QD
     Route: 042
     Dates: start: 20131128, end: 20131202

REACTIONS (1)
  - Hypoglycaemia [Recovering/Resolving]
